FAERS Safety Report 19043194 (Version 1)
Quarter: 2021Q1

REPORT INFORMATION
  Report Type: Spontaneous
  Country: CA (occurrence: CA)
  Receive Date: 20210323
  Receipt Date: 20210323
  Transmission Date: 20210420
  Serious: Yes (Hospitalization)
  Sender: FDA-Public Use
  Company Number: CA-MYLANLABS-2021M1015385

PATIENT
  Age: 1 Month
  Sex: Female
  Weight: 2 kg

DRUGS (6)
  1. VANCOMYCIN [Suspect]
     Active Substance: VANCOMYCIN
     Indication: SEPSIS
     Dosage: 32.0 MILLIGRAM, Q8H
  2. CEFOTAXIME [Concomitant]
     Active Substance: CEFOTAXIME SODIUM
  3. FERROUS SULFATE. [Concomitant]
     Active Substance: FERROUS SULFATE
  4. SUCROSE [Concomitant]
     Active Substance: SUCROSE
     Dosage: TOOTH FEET 24 PERCENR SUCROSE SOLUTION
  5. ZINC OXIDE. [Concomitant]
     Active Substance: ZINC OXIDE
  6. SMOFLIPID [Concomitant]
     Active Substance: FISH OIL\MEDIUM-CHAIN TRIGLYCERIDES\OLIVE OIL\SOYBEAN OIL

REACTIONS (3)
  - Toxicity to various agents [Unknown]
  - Blood creatinine increased [Unknown]
  - Drug level above therapeutic [Unknown]
